FAERS Safety Report 6468137-3 (Version None)
Quarter: 2009Q4

REPORT INFORMATION
  Report Type: 
  Country: None (occurrence: None)
  Receive Date: 20091202
  Receipt Date: 20091130
  Transmission Date: 20100525
  Serious: Yes (Hospitalization)
  Sender: FDA-Public Use
  Company Number: FR-MERCK-0911FRA00107

PATIENT
  Age: 76 Year
  Sex: Female

DRUGS (30)
  1. LEVETIRACETAM [Concomitant]
     Indication: EPILEPSY
     Route: 048
     Dates: start: 20090429, end: 20090514
  2. PRIMAXIN [Suspect]
     Indication: FEBRILE BONE MARROW APLASIA
     Route: 042
     Dates: start: 20090415, end: 20090513
  3. PRIMAXIN [Suspect]
     Indication: LUNG INFECTION
     Route: 042
     Dates: start: 20090415, end: 20090513
  4. VANCOMYCIN [Concomitant]
     Indication: FEBRILE BONE MARROW APLASIA
     Route: 041
     Dates: start: 20090416, end: 20090511
  5. VANCOMYCIN [Concomitant]
     Indication: LUNG INFECTION
     Route: 041
     Dates: start: 20090416, end: 20090511
  6. VENLAFAXINE HYDROCHLORIDE [Concomitant]
     Route: 048
     Dates: start: 20090503
  7. VENLAFAXINE HYDROCHLORIDE [Concomitant]
     Route: 048
     Dates: start: 20090503
  8. GABAPENTIN [Concomitant]
     Indication: EPILEPSY
     Route: 065
  9. CIPROFLOXACIN HYDROCHLORIDE [Concomitant]
     Indication: FEBRILE BONE MARROW APLASIA
     Route: 065
  10. CIPROFLOXACIN HYDROCHLORIDE [Concomitant]
     Indication: LUNG INFECTION
     Route: 065
  11. PIPERACILLIN SODIUM AND TAZOBACTAM SODIUM [Concomitant]
     Indication: FEBRILE BONE MARROW APLASIA
     Route: 065
  12. PIPERACILLIN SODIUM AND TAZOBACTAM SODIUM [Concomitant]
     Indication: LUNG INFECTION
     Route: 065
  13. AMOXICILLIN AND CLAVULANATE POTASSIUM [Concomitant]
     Indication: FEBRILE BONE MARROW APLASIA
     Route: 065
  14. AMOXICILLIN AND CLAVULANATE POTASSIUM [Concomitant]
     Indication: LUNG INFECTION
     Route: 065
  15. CARBOPLATIN [Concomitant]
     Indication: SMALL CELL LUNG CANCER STAGE UNSPECIFIED
     Route: 065
     Dates: start: 20090506
  16. CARBOPLATIN [Concomitant]
     Route: 065
     Dates: start: 20090602
  17. CARBOPLATIN [Concomitant]
     Route: 065
     Dates: start: 20090626
  18. CARBOPLATIN [Concomitant]
     Route: 065
     Dates: start: 20090101
  19. CARBOPLATIN [Concomitant]
     Indication: METASTASIS
     Route: 065
     Dates: start: 20090506
  20. CARBOPLATIN [Concomitant]
     Route: 065
     Dates: start: 20090602
  21. CARBOPLATIN [Concomitant]
     Route: 065
     Dates: start: 20090626
  22. CARBOPLATIN [Concomitant]
     Route: 065
     Dates: start: 20090101
  23. ETOPOSIDE [Concomitant]
     Indication: SMALL CELL LUNG CANCER STAGE UNSPECIFIED
     Route: 065
     Dates: start: 20090506
  24. ETOPOSIDE [Concomitant]
     Route: 065
     Dates: start: 20090602
  25. ETOPOSIDE [Concomitant]
     Route: 065
     Dates: start: 20090626
  26. ETOPOSIDE [Concomitant]
     Route: 065
     Dates: start: 20090101
  27. ETOPOSIDE [Concomitant]
     Indication: METASTASIS
     Route: 065
     Dates: start: 20090506
  28. ETOPOSIDE [Concomitant]
     Route: 065
     Dates: start: 20090602
  29. ETOPOSIDE [Concomitant]
     Route: 065
     Dates: start: 20090626
  30. ETOPOSIDE [Concomitant]
     Route: 065
     Dates: start: 20090101

REACTIONS (4)
  - EOSINOPHILIA [None]
  - RASH MACULO-PAPULAR [None]
  - TYPE IV HYPERSENSITIVITY REACTION [None]
  - VASCULAR PURPURA [None]
